FAERS Safety Report 10981716 (Version 1)
Quarter: 2015Q1

REPORT INFORMATION
  Report Type: Spontaneous
  Country: US (occurrence: None)
  Receive Date: 20150227
  Receipt Date: 20150227
  Transmission Date: 20150721
  Serious: Yes (Other)
  Sender: FDA-Public Use
  Company Number: LMI-2013-00537

PATIENT
  Age: 52 Year
  Sex: Female
  Weight: 84.4 kg

DRUGS (10)
  1. PROTONIX [Concomitant]
     Active Substance: PANTOPRAZOLE SODIUM
  2. DOBUTAMINE [Suspect]
     Active Substance: DOBUTAMINE\DOBUTAMINE HYDROCHLORIDE
     Dates: start: 20131231, end: 20131231
  3. DEFINITY [Suspect]
     Active Substance: PERFLUTREN
     Indication: STRESS ECHOCARDIOGRAM
     Dosage: 1 VIAL DEFINITY DILUTED IN 8 ML NORMAL SALINE (1 ML)
     Route: 040
     Dates: start: 20141231, end: 20141231
  4. ADVAIR (SERETIDE) [Concomitant]
  5. NEXIUM [Concomitant]
     Active Substance: ESOMEPRAZOLE MAGNESIUM
  6. DEPAKOTE [Concomitant]
     Active Substance: DIVALPROEX SODIUM
  7. DEFINITY [Suspect]
     Active Substance: PERFLUTREN
     Indication: STRESS ECHOCARDIOGRAM
     Dosage: 1 VIAL DEFINITY DILUTED IN 8 ML NORMAL SALINE (1 ML)
     Route: 040
     Dates: start: 20131231, end: 20131231
  8. PROMETHAZINE [Concomitant]
     Active Substance: PROMETHAZINE\PROMETHAZINE HYDROCHLORIDE
  9. DEFINITY [Suspect]
     Active Substance: PERFLUTREN
     Indication: STRESS ECHOCARDIOGRAM
     Dosage: 1 VIAL DEFINITY DILUTED IN 8 ML NORMAL SALINE (2 ML)
     Route: 040
     Dates: start: 20131231, end: 20131231
  10. TYLENOL 3 (PANADEINE CO) [Concomitant]

REACTIONS (1)
  - Petit mal epilepsy [None]

NARRATIVE: CASE EVENT DATE: 20131231
